FAERS Safety Report 9122373 (Version 2)
Quarter: 2013Q4

REPORT INFORMATION
  Report Type: Spontaneous
  Country: FR (occurrence: FR)
  Receive Date: 20130114
  Receipt Date: 20131111
  Transmission Date: 20140711
  Serious: Yes (Hospitalization, Other)
  Sender: FDA-Public Use
  Company Number: FR-TEVA-378951ISR

PATIENT
  Sex: 0

DRUGS (1)
  1. IPRATROPIUM [Suspect]
     Route: 055

REACTIONS (3)
  - Asthmatic crisis [Unknown]
  - Bronchospasm [Unknown]
  - Reaction to drug excipients [Unknown]
